FAERS Safety Report 6122188-7 (Version None)
Quarter: 2009Q1

REPORT INFORMATION
  Report Type: 
  Country: None (occurrence: None)
  Receive Date: 20090316
  Receipt Date: 20090316
  Transmission Date: 20090719
  Serious: Yes (Hospitalization, Other)
  Sender: FDA-Public Use
  Company Number: None

PATIENT
  Sex: Female
  Weight: 55 kg

DRUGS (2)
  1. TREANDA [Suspect]
     Indication: NON-HODGKIN'S LYMPHOMA RECURRENT
     Dosage: 90 MG/M2 DA 1 AND 2 IV DRIP
     Route: 041
     Dates: start: 20090224, end: 20090225
  2. RITUXAN [Concomitant]

REACTIONS (14)
  - ANOREXIA [None]
  - HEADACHE [None]
  - INFECTION [None]
  - INFUSION SITE DISCOLOURATION [None]
  - INFUSION SITE ERYTHEMA [None]
  - INFUSION SITE EXTRAVASATION [None]
  - INFUSION SITE NECROSIS [None]
  - INFUSION SITE PAIN [None]
  - INFUSION SITE SWELLING [None]
  - INFUSION SITE VESICLES [None]
  - INFUSION SITE WARMTH [None]
  - NAUSEA [None]
  - PHLEBITIS [None]
  - VOMITING [None]
